FAERS Safety Report 7435219-9 (Version None)
Quarter: 2011Q2

REPORT INFORMATION
  Report Type: 
  Country: None (occurrence: None)
  Receive Date: 20110418
  Receipt Date: 20110405
  Transmission Date: 20111010
  Serious: Yes (Life-Threatening)
  Sender: FDA-Public Use
  Company Number: GB-ACCORD-008720

PATIENT
  Age: 50 Year
  Sex: Male

DRUGS (10)
  1. RITUXIMAB(RITUXIMAB) [Suspect]
     Indication: NON-HODGKIN'S LYMPHOMA UNSPECIFIED HISTOLOGY AGGRESSIVE
  2. METHOTREXATE [Suspect]
     Indication: NON-HODGKIN'S LYMPHOMA UNSPECIFIED HISTOLOGY AGGRESSIVE
  3. IFOSFAMIDE [Suspect]
     Indication: NON-HODGKIN'S LYMPHOMA UNSPECIFIED HISTOLOGY AGGRESSIVE
  4. MESNA [Concomitant]
  5. ETOPOSIDE [Suspect]
     Indication: NON-HODGKIN'S LYMPHOMA UNSPECIFIED HISTOLOGY AGGRESSIVE
  6. VINCRISTINE [Suspect]
     Indication: NON-HODGKIN'S LYMPHOMA UNSPECIFIED HISTOLOGY AGGRESSIVE
  7. CLOZAPINE [Suspect]
     Indication: PRODUCT USED FOR UNKNOWN INDICATION
     Dosage: ORAL
     Route: 048
     Dates: start: 20040915
  8. CYTARABINE [Suspect]
     Indication: NON-HODGKIN'S LYMPHOMA UNSPECIFIED HISTOLOGY AGGRESSIVE
  9. CYCLOPHOSPHAMIDE [Suspect]
     Indication: NON-HODGKIN'S LYMPHOMA UNSPECIFIED HISTOLOGY AGGRESSIVE
  10. DOXORUBICIN HCL [Suspect]
     Indication: NON-HODGKIN'S LYMPHOMA UNSPECIFIED HISTOLOGY AGGRESSIVE

REACTIONS (5)
  - AGRANULOCYTOSIS [None]
  - NON-HODGKIN'S LYMPHOMA [None]
  - DRUG INTERACTION [None]
  - LEUKOPENIA [None]
  - NEUTROPENIA [None]
